FAERS Safety Report 10608327 (Version 1)
Quarter: 2014Q4

REPORT INFORMATION
  Report Type: Spontaneous
  Country: GB (occurrence: GB)
  Receive Date: 20141125
  Receipt Date: 20141125
  Transmission Date: 20150529
  Serious: Yes (Hospitalization)
  Sender: FDA-Public Use
  Company Number: PHHY2014GB150866

PATIENT
  Age: 32 Year
  Sex: Male

DRUGS (6)
  1. MIRTAZAPINE. [Concomitant]
     Active Substance: MIRTAZAPINE
     Indication: DEPRESSION
  2. DILTIAZEM [Suspect]
     Active Substance: DILTIAZEM
     Indication: PRODUCT USED FOR UNKNOWN INDICATION
     Dosage: 5040 MG, UNK
     Route: 065
  3. MIRTAZAPINE. [Concomitant]
     Active Substance: MIRTAZAPINE
     Indication: SUICIDE ATTEMPT
  4. BISOPROLOL [Suspect]
     Active Substance: BISOPROLOL
     Indication: PRODUCT USED FOR UNKNOWN INDICATION
     Dosage: 200 MG, UNK
     Route: 065
  5. SIMVASTATIN. [Suspect]
     Active Substance: SIMVASTATIN
     Indication: PRODUCT USED FOR UNKNOWN INDICATION
     Dosage: 280 MG, UNK
     Route: 065
  6. MIRTAZAPINE. [Concomitant]
     Active Substance: MIRTAZAPINE
     Indication: SELF INJURIOUS BEHAVIOUR
     Route: 065

REACTIONS (16)
  - Hypothermia [Recovering/Resolving]
  - Metabolic acidosis [Recovering/Resolving]
  - Overdose [Recovering/Resolving]
  - Hypotension [Recovering/Resolving]
  - Rhabdomyolysis [Recovering/Resolving]
  - Cardiac arrest [Recovering/Resolving]
  - Respiratory acidosis [Recovering/Resolving]
  - Hypoxia [Recovering/Resolving]
  - Acidosis [Recovering/Resolving]
  - Myopathy [Recovering/Resolving]
  - Bradycardia [Recovering/Resolving]
  - Atrioventricular block complete [Recovering/Resolving]
  - Hypokalaemia [Recovering/Resolving]
  - Oliguria [Recovering/Resolving]
  - Anuria [Recovering/Resolving]
  - Muscular weakness [Recovering/Resolving]
